FAERS Safety Report 4549538-7 (Version None)
Quarter: 2005Q1

REPORT INFORMATION
  Report Type: 
  Country: None (occurrence: None)
  Receive Date: 20050111
  Receipt Date: 20041220
  Transmission Date: 20050727
  Serious: Yes (Life-Threatening)
  Sender: FDA-Public Use
  Company Number: GB-ROCHE-389651

PATIENT
  Age: 32 Year
  Sex: Female
  Weight: 61 kg

DRUGS (3)
  1. CELLCEPT [Suspect]
     Indication: SCLERODERMA
     Route: 048
     Dates: start: 20041116, end: 20041210
  2. PRAXILENE [Concomitant]
     Indication: SCLERODERMA
     Dates: start: 20041116, end: 20041215
  3. AMLODIPINE [Concomitant]
     Indication: SCLERODERMA
     Dates: start: 20041116

REACTIONS (3)
  - DYSPHORIA [None]
  - IRRITABILITY [None]
  - SUICIDAL IDEATION [None]
